FAERS Safety Report 23681498 (Version 2)
Quarter: 2024Q2

REPORT INFORMATION
  Report Type: Spontaneous
  Country: GB (occurrence: GB)
  Receive Date: 20240328
  Receipt Date: 20240403
  Transmission Date: 20240716
  Serious: Yes (Death, Hospitalization, Other)
  Sender: FDA-Public Use
  Company Number: GB-TORRENT-00035613

PATIENT
  Age: 27 Year
  Sex: Male

DRUGS (3)
  1. PREGABALIN [Suspect]
     Active Substance: PREGABALIN
     Indication: Anxiety
     Dosage: UNKNOWN; ;
     Route: 065
  2. PREGABALIN [Suspect]
     Active Substance: PREGABALIN
     Indication: Depression
  3. TRAMADOL [Suspect]
     Active Substance: TRAMADOL\TRAMADOL HYDROCHLORIDE
     Indication: Product used for unknown indication
     Dosage: UNKNOWN; ;
     Route: 065

REACTIONS (7)
  - Overdose [Fatal]
  - Drug dependence [Fatal]
  - Prescription drug used without a prescription [Fatal]
  - Accidental overdose [Fatal]
  - Self-medication [Unknown]
  - Drug tolerance [Unknown]
  - Intentional product misuse [Unknown]
